FAERS Safety Report 5155524-9 (Version None)
Quarter: 2006Q4

REPORT INFORMATION
  Report Type: 
  Country: None (occurrence: None)
  Receive Date: 20061114
  Receipt Date: 20061101
  Transmission Date: 20070319
  Serious: Yes (Other)
  Sender: FDA-Public Use
  Company Number: US-2006-034071

PATIENT
  Age: 34 Year
  Sex: Female

DRUGS (1)
  1. BETASERON [Suspect]
     Indication: MULTIPLE SCLEROSIS
     Dosage: 4 MIU, EVERY 2D, SUBCUTANEOUS
     Route: 058
     Dates: start: 20061025

REACTIONS (2)
  - HEMIPARESIS [None]
  - MEMORY IMPAIRMENT [None]
